FAERS Safety Report 26049515 (Version 1)
Quarter: 2025Q4

REPORT INFORMATION
  Report Type: Spontaneous
  Country: EU (occurrence: EU)
  Receive Date: 20251115
  Receipt Date: 20251115
  Transmission Date: 20260118
  Serious: Yes (Other)
  Sender: AUROBINDO
  Company Number: EU-MYLANLABS-2022M1027693

PATIENT
  Sex: Female

DRUGS (3)
  1. SUMATRIPTAN [Suspect]
     Active Substance: SUMATRIPTAN
     Indication: Migraine
     Dosage: UNK [UNK UNK, MONTHLY (AROUND 10 TABLETS A MONTH)]
     Route: 065
  2. RIZATRIPTAN [Suspect]
     Active Substance: RIZATRIPTAN
     Indication: Migraine
     Dosage: UNK [UNK, MONTHLY (AROUND 10 TABLETS A MONTH)]
     Route: 065
  3. ALMOTRIPTAN [Suspect]
     Active Substance: ALMOTRIPTAN
     Indication: Migraine
     Dosage: UNK [UNK UNK, MONTHLY (AROUND 10 TABLETS A MONTH)]
     Route: 065

REACTIONS (1)
  - Transient ischaemic attack [Unknown]
